FAERS Safety Report 20801107 (Version 1)
Quarter: 2022Q2

REPORT INFORMATION
  Report Type: Report from Study
  Country: DE (occurrence: DE)
  Receive Date: 20220509
  Receipt Date: 20220509
  Transmission Date: 20220720
  Serious: Yes (Death)
  Sender: FDA-Public Use
  Company Number: DE-NOVARTISPH-NVSC2022DE105264

PATIENT
  Sex: Female

DRUGS (4)
  1. KISQALI [Suspect]
     Active Substance: RIBOCICLIB
     Indication: Hormone receptor positive HER2 negative breast cancer
     Dosage: 600 MG (DAILY DOSE) SCHEMA 21 DAYS INTAKE, 7 DAYS PAUSE
     Route: 048
     Dates: start: 20191211, end: 20200403
  2. KISQALI [Suspect]
     Active Substance: RIBOCICLIB
     Dosage: 400 MG (DAILY DOSE) SCHEMA 21 DAYS INTAKE, 7 DAYS PAUSE
     Route: 048
     Dates: start: 20200404, end: 20200819
  3. LETROZOLE [Suspect]
     Active Substance: LETROZOLE
     Indication: Hormone receptor positive HER2 negative breast cancer
     Dosage: 2.5 MG, QD
     Route: 048
     Dates: start: 20191211, end: 20200819
  4. AFINITOR [Suspect]
     Active Substance: EVEROLIMUS
     Indication: Hormone receptor positive HER2 negative breast cancer
     Dosage: 10 MG, QD
     Route: 048
     Dates: start: 20210608

REACTIONS (1)
  - Death [Fatal]

NARRATIVE: CASE EVENT DATE: 20220501
